FAERS Safety Report 26143237 (Version 2)
Quarter: 2025Q4

REPORT INFORMATION
  Report Type: Spontaneous
  Country: US (occurrence: US)
  Receive Date: 20251211
  Receipt Date: 20251215
  Transmission Date: 20260117
  Serious: Yes (Death, Hospitalization, Other)
  Sender: STRIDES
  Company Number: US-STRIDES PHARMA UK LTD.-2025SP015453

PATIENT

DRUGS (9)
  1. VANCOMYCIN [Suspect]
     Active Substance: VANCOMYCIN
     Indication: Septic shock
     Dosage: UNK
     Route: 065
  2. VANCOMYCIN [Suspect]
     Active Substance: VANCOMYCIN
     Indication: Pathogen resistance
  3. VANCOMYCIN [Suspect]
     Active Substance: VANCOMYCIN
     Indication: Klebsiella infection
  4. VANCOMYCIN [Suspect]
     Active Substance: VANCOMYCIN
     Indication: Urinary tract infection bacterial
  5. MEROPENEM [Suspect]
     Active Substance: MEROPENEM
     Indication: Klebsiella infection
     Dosage: UNK
     Route: 065
  6. MEROPENEM [Suspect]
     Active Substance: MEROPENEM
     Indication: Urinary tract infection bacterial
  7. MEROPENEM [Suspect]
     Active Substance: MEROPENEM
     Indication: Pathogen resistance
  8. MEROPENEM [Suspect]
     Active Substance: MEROPENEM
     Indication: Septic shock
  9. TECLISTAMAB [Concomitant]
     Active Substance: TECLISTAMAB
     Indication: Plasma cell myeloma
     Dosage: UNK
     Route: 065

REACTIONS (2)
  - Drug ineffective [Fatal]
  - Drug ineffective for unapproved indication [Fatal]
